FAERS Safety Report 23199945 (Version 2)
Quarter: 2024Q1

REPORT INFORMATION
  Report Type: Spontaneous
  Country: US (occurrence: US)
  Receive Date: 20231117
  Receipt Date: 20240209
  Transmission Date: 20240409
  Serious: No
  Sender: FDA-Public Use
  Company Number: US-BIOGEN-2023BI01235667

PATIENT
  Sex: Female

DRUGS (1)
  1. SPINRAZA [Suspect]
     Active Substance: NUSINERSEN
     Indication: Spinal muscular atrophy
     Route: 050
     Dates: start: 20170331

REACTIONS (5)
  - Cystitis [Recovered/Resolved]
  - Renal atrophy [Unknown]
  - Bladder disorder [Not Recovered/Not Resolved]
  - Procedural pain [Unknown]
  - Procedural anxiety [Unknown]

NARRATIVE: CASE EVENT DATE: 20230101
